FAERS Safety Report 8366671-2 (Version None)
Quarter: 2012Q2

REPORT INFORMATION
  Report Type: 
  Country: None (occurrence: None)
  Receive Date: 20120516
  Receipt Date: 20120516
  Transmission Date: 20120825
  Serious: Yes (Hospitalization)
  Sender: FDA-Public Use
  Company Number: None

PATIENT
  Sex: Female

DRUGS (1)
  1. SEASONIQUE [Suspect]
     Indication: CONTRACEPTION
     Dosage: 0.15-0.03 + 0.01 MG TABS; 1 TABLET DAILY PO
     Route: 048
     Dates: start: 20101004

REACTIONS (1)
  - THROMBOSIS [None]
